FAERS Safety Report 21566078 (Version 1)
Quarter: 2022Q4

REPORT INFORMATION
  Report Type: Spontaneous
  Country: US (occurrence: US)
  Receive Date: 20221108
  Receipt Date: 20221108
  Transmission Date: 20230113
  Serious: No
  Sender: FDA-Public Use
  Company Number: US-Calliditas-2022CAL00467

PATIENT
  Age: 36 Year
  Sex: Male

DRUGS (2)
  1. TARPEYO [Suspect]
     Active Substance: BUDESONIDE
     Indication: IgA nephropathy
     Dosage: 16 MG (4 CAPSULES) DAILY
     Route: 048
     Dates: start: 20220706
  2. LISINOPRIL [Concomitant]
     Active Substance: LISINOPRIL
     Indication: Blood pressure increased
     Dosage: INCREASED TO 15 MG DAILY

REACTIONS (3)
  - Swelling face [Unknown]
  - Fluid retention [Unknown]
  - Blood pressure increased [Unknown]
